FAERS Safety Report 13277976 (Version 2)
Quarter: 2017Q1

REPORT INFORMATION
  Report Type: Spontaneous
  Country: US (occurrence: US)
  Receive Date: 20170228
  Receipt Date: 20170303
  Transmission Date: 20170428
  Serious: Yes (Hospitalization)
  Sender: FDA-Public Use
  Company Number: US-ASTRAZENECA-2017SE21393

PATIENT
  Age: 821 Month
  Sex: Male
  Weight: 73 kg

DRUGS (3)
  1. BRILINTA [Suspect]
     Active Substance: TICAGRELOR
     Indication: ANGIOPLASTY
     Route: 048
     Dates: start: 20170201, end: 20170209
  2. CALCIUM [Concomitant]
     Active Substance: CALCIUM
     Indication: RENAL DISORDER
     Dosage: THREE TIMES A DAY
     Route: 048
     Dates: start: 20170209
  3. ASPIRIN. [Concomitant]
     Active Substance: ASPIRIN
     Indication: CARDIAC DISORDER
     Route: 048
     Dates: start: 20170202

REACTIONS (4)
  - Rash generalised [Recovered/Resolved]
  - Vomiting [Unknown]
  - Renal failure [Recovering/Resolving]
  - Rash pruritic [Recovering/Resolving]

NARRATIVE: CASE EVENT DATE: 201702
